FAERS Safety Report 5978789-X (Version None)
Quarter: 2008Q4

REPORT INFORMATION
  Report Type: 
  Country: None (occurrence: None)
  Receive Date: 20081204
  Receipt Date: 20081121
  Transmission Date: 20090506
  Serious: Yes (Hospitalization, Other)
  Sender: FDA-Public Use
  Company Number: PHHY2008BR29349

PATIENT
  Age: 70 Year
  Sex: Male

DRUGS (4)
  1. EXFORGE [Suspect]
     Indication: HYPERTENSION
     Dosage: 1 DF, QD
     Route: 048
     Dates: start: 20081001
  2. SYNTHROID [Concomitant]
     Dosage: 1 TABLET A DAY
     Route: 048
  3. NOODIPINA [Concomitant]
     Indication: BLOOD PRESSURE
     Dosage: 2 TABLETS A DAY
     Route: 048
  4. AAS [Concomitant]
     Indication: ISCHAEMIA
     Dosage: 100 MG, QD
     Route: 048
     Dates: start: 20071001

REACTIONS (4)
  - CONDITION AGGRAVATED [None]
  - DEPRESSION [None]
  - PAIN [None]
  - SKIN ULCER [None]
